FAERS Safety Report 7470737-9 (Version None)
Quarter: 2011Q2

REPORT INFORMATION
  Report Type: 
  Country: None (occurrence: None)
  Receive Date: 20110510
  Receipt Date: 20110505
  Transmission Date: 20111010
  Serious: Yes (Other)
  Sender: FDA-Public Use
  Company Number: PHHY2011AU38316

PATIENT
  Sex: Female

DRUGS (2)
  1. ZOLEDRONIC ACID [Suspect]
     Dosage: 5 MG, UNK
     Route: 042
     Dates: start: 20101108
  2. ZOLEDRONIC ACID [Suspect]
     Dosage: 5 MG, UNK
     Route: 042

REACTIONS (3)
  - VIITH NERVE PARALYSIS [None]
  - HEADACHE [None]
  - VISUAL IMPAIRMENT [None]
